FAERS Safety Report 24603659 (Version 2)
Quarter: 2025Q2

REPORT INFORMATION
  Report Type: Spontaneous
  Country: AU (occurrence: AU)
  Receive Date: 20241111
  Receipt Date: 20250626
  Transmission Date: 20250716
  Serious: Yes (Congenital Anomaly, Other)
  Sender: ADVANZ PHARMA
  Company Number: AU-ADVANZ PHARMA-202411009096

PATIENT

DRUGS (7)
  1. ZONISAMIDE [Suspect]
     Active Substance: ZONISAMIDE
     Indication: Product used for unknown indication
     Route: 064
  2. PHENYTOIN [Suspect]
     Active Substance: PHENYTOIN
     Indication: Product used for unknown indication
     Route: 064
  3. CLOBAZAM [Suspect]
     Active Substance: CLOBAZAM
     Indication: Product used for unknown indication
     Route: 064
  4. LACOSAMIDE [Suspect]
     Active Substance: LACOSAMIDE
     Indication: Product used for unknown indication
     Route: 064
  5. LAMOTRIGINE [Suspect]
     Active Substance: LAMOTRIGINE
     Indication: Product used for unknown indication
     Route: 064
  6. LEVETIRACETAM [Suspect]
     Active Substance: LEVETIRACETAM
     Indication: Product used for unknown indication
     Route: 064
  7. PHENOBARBITAL [Suspect]
     Active Substance: PHENOBARBITAL
     Indication: Product used for unknown indication
     Route: 064

REACTIONS (5)
  - Congenital aplasia [Unknown]
  - Spina bifida [Unknown]
  - Cleft palate [Unknown]
  - Foetal malformation [Unknown]
  - Foetal exposure during pregnancy [Unknown]
